FAERS Safety Report 15284147 (Version 1)
Quarter: 2018Q3

REPORT INFORMATION
  Report Type: Spontaneous
  Country: US (occurrence: US)
  Receive Date: 20180801
  Receipt Date: 20180801
  Transmission Date: 20181010
  Serious: Yes (Hospitalization)
  Sender: FDA-Public Use
  Company Number: None

PATIENT
  Sex: Female

DRUGS (8)
  1. GLYXAMBI [Concomitant]
     Active Substance: EMPAGLIFLOZIN\LINAGLIPTIN
  2. JARDIANCE [Concomitant]
     Active Substance: EMPAGLIFLOZIN
  3. METFORMIN [Concomitant]
     Active Substance: METFORMIN HYDROCHLORIDE
  4. SIMVASTATIN. [Concomitant]
     Active Substance: SIMVASTATIN
  5. IMATINIB MES [Suspect]
     Active Substance: IMATINIB MESYLATE
     Indication: CARCINOID TUMOUR
     Route: 048
     Dates: start: 20170706
  6. INSULIN PUMP [Concomitant]
     Active Substance: INSULIN NOS
  7. NOVOLOG [Concomitant]
     Active Substance: INSULIN ASPART
  8. VITAMIN D [Concomitant]
     Active Substance: CHOLECALCIFEROL

REACTIONS (1)
  - Surgery [None]
